FAERS Safety Report 4305490-0 (Version None)
Quarter: 2004Q1

REPORT INFORMATION
  Report Type: 
  Country: None (occurrence: None)
  Receive Date: 20040226
  Receipt Date: 20031020
  Transmission Date: 20041129
  Serious: Yes (Other)
  Sender: FDA-Public Use
  Company Number: US-BRISTOL-MYERS SQUIBB COMPANY-12416624

PATIENT
  Age: 8 Year
  Sex: Male
  Weight: 26 kg

DRUGS (7)
  1. ABILIFY [Suspect]
     Indication: PSYCHOTIC DISORDER
     Route: 048
     Dates: start: 20031016, end: 20031017
  2. ABILIFY [Suspect]
     Indication: ATTENTION DEFICIT/HYPERACTIVITY DISORDER
     Route: 048
     Dates: start: 20031016, end: 20031017
  3. KLONOPIN [Concomitant]
  4. LITHIUM CARBONATE [Concomitant]
  5. QUETIAPINE [Concomitant]
  6. CLONIDINE [Concomitant]
  7. ADDERALL 10 [Concomitant]
     Dosage: ^2 FORMS^

REACTIONS (4)
  - CONFUSIONAL STATE [None]
  - DYSTONIA [None]
  - FEAR [None]
  - NEUROLEPTIC MALIGNANT SYNDROME [None]
